FAERS Safety Report 21962959 (Version 2)
Quarter: 2023Q1

REPORT INFORMATION
  Report Type: Spontaneous
  Country: US (occurrence: US)
  Receive Date: 20230207
  Receipt Date: 20230302
  Transmission Date: 20230418
  Serious: No
  Sender: FDA-Public Use
  Company Number: US-PFIZER INC-202300051837

PATIENT
  Age: 82 Year
  Sex: Female
  Weight: 68.027 kg

DRUGS (5)
  1. PAXLOVID [Suspect]
     Active Substance: NIRMATRELVIR\RITONAVIR
     Indication: COVID-19 treatment
     Dosage: UNK, 2X/DAY (MORNING AND EVENING)
     Dates: start: 20230201, end: 20230205
  2. TIZANIDINE [Concomitant]
     Active Substance: TIZANIDINE
     Indication: Muscle spasms
     Dosage: UNK
     Dates: start: 20230129, end: 20230218
  3. MELOXICAM [Concomitant]
     Active Substance: MELOXICAM
     Indication: Inflammation
     Dosage: 15 MG, 1X/DAY
     Dates: start: 20230129, end: 20230218
  4. MELOXICAM [Concomitant]
     Active Substance: MELOXICAM
     Indication: Back pain
  5. HYDROCHLOROTHIAZIDE\TRIAMTERENE [Concomitant]
     Active Substance: HYDROCHLOROTHIAZIDE\TRIAMTERENE
     Indication: Hypertension
     Dosage: UNK (GENERIC FOR MAXIDE, BEEN TAKING A LONG TIME)

REACTIONS (6)
  - Peripheral swelling [Not Recovered/Not Resolved]
  - Back pain [Not Recovered/Not Resolved]
  - Limb mass [Not Recovered/Not Resolved]
  - Muscle spasms [Unknown]
  - Malaise [Not Recovered/Not Resolved]
  - Insomnia [Recovered/Resolved]

NARRATIVE: CASE EVENT DATE: 20230201
